FAERS Safety Report 8308339-4 (Version None)
Quarter: 2012Q2

REPORT INFORMATION
  Report Type: 
  Country: None (occurrence: None)
  Receive Date: 20120424
  Receipt Date: 20120409
  Transmission Date: 20120825
  Serious: No
  Sender: FDA-Public Use
  Company Number: US-JNJFOC-20120404427

PATIENT
  Age: 31 Year
  Sex: Female
  Weight: 80.74 kg

DRUGS (5)
  1. CELEXA [Concomitant]
     Route: 065
  2. VALIUM [Concomitant]
     Route: 065
  3. INVEGA SUSTENNA [Suspect]
     Indication: PERSONALITY DISORDER
     Route: 030
     Dates: start: 20120301
  4. COGENTIN [Concomitant]
     Route: 065
  5. PROPRANOLOL [Concomitant]
     Route: 065

REACTIONS (2)
  - GALACTORRHOEA [None]
  - AMENORRHOEA [None]
